FAERS Safety Report 7018361-6 (Version None)
Quarter: 2010Q3

REPORT INFORMATION
  Report Type: 
  Country: None (occurrence: None)
  Receive Date: 20100924
  Receipt Date: 20100908
  Transmission Date: 20110219
  Serious: Yes (Hospitalization)
  Sender: FDA-Public Use
  Company Number: 2010113331

PATIENT
  Age: 68 Year
  Sex: Male

DRUGS (7)
  1. FRAGMIN [Suspect]
     Indication: DEEP VEIN THROMBOSIS
     Dosage: 6500 IU, 2X/DAY, SUBCUTANEOUS
     Route: 058
     Dates: start: 20100904
  2. FRAGMIN [Suspect]
     Indication: PULMONARY EMBOLISM
     Dosage: 6500 IU, 2X/DAY, SUBCUTANEOUS
     Route: 058
     Dates: start: 20100904
  3. WARFARIN SODIUM [Suspect]
     Dosage: 10 MG DAILY, 5 MG DAILY
     Dates: start: 20100904, end: 20100904
  4. WARFARIN SODIUM [Suspect]
     Dosage: 10 MG DAILY, 5 MG DAILY
     Dates: start: 20100905, end: 20100906
  5. DURAGESIC-100 [Concomitant]
  6. TOPROL-XL [Concomitant]
  7. CELEXA [Concomitant]

REACTIONS (2)
  - INTERNATIONAL NORMALISED RATIO INCREASED [None]
  - PROTHROMBIN TIME PROLONGED [None]
